FAERS Safety Report 15826244 (Version 10)
Quarter: 2021Q3

REPORT INFORMATION
  Report Type: Spontaneous
  Country: US (occurrence: US)
  Receive Date: 20190115
  Receipt Date: 20210813
  Transmission Date: 20211014
  Serious: Yes (Other)
  Sender: FDA-Public Use
  Company Number: US-PFIZER INC-2019015281

PATIENT
  Age: 55 Year
  Sex: Female
  Weight: 61 kg

DRUGS (7)
  1. LYRICA [Suspect]
     Active Substance: PREGABALIN
     Indication: LUMBAR RADICULOPATHY
  2. LYRICA [Suspect]
     Active Substance: PREGABALIN
     Indication: PAIN
  3. LYRICA [Suspect]
     Active Substance: PREGABALIN
     Indication: LYME DISEASE
     Dosage: 100 MG, 4X/DAY
     Route: 048
     Dates: start: 2006
  4. LYRICA [Suspect]
     Active Substance: PREGABALIN
     Indication: POLYNEUROPATHY
     Dosage: 200 MG, 2X/DAY (100 MG CAPSULE, 2 CAPS IN AM 2 CAPS IN PM)
     Route: 048
  5. LYRICA [Suspect]
     Active Substance: PREGABALIN
     Indication: OSTEOARTHRITIS
  6. LYRICA [Suspect]
     Active Substance: PREGABALIN
     Indication: NERVE INJURY
     Dosage: 150 MG, 4X/DAY
  7. LYRICA [Suspect]
     Active Substance: PREGABALIN
     Indication: NEUROPATHY PERIPHERAL
     Dosage: 150 MG, 3X/DAY

REACTIONS (5)
  - Illness [Not Recovered/Not Resolved]
  - Back injury [Recovered/Resolved with Sequelae]
  - Rotator cuff syndrome [Recovered/Resolved with Sequelae]
  - Fall [Unknown]
  - Limb deformity [Unknown]

NARRATIVE: CASE EVENT DATE: 2015
